FAERS Safety Report 5646441-6 (Version None)
Quarter: 2008Q1

REPORT INFORMATION
  Report Type: 
  Country: None (occurrence: None)
  Receive Date: 20080227
  Receipt Date: 20080114
  Transmission Date: 20080703
  Serious: Yes (Life-Threatening, Hospitalization)
  Sender: FDA-Public Use
  Company Number: 2008AL000913

PATIENT
  Age: 39 Year
  Sex: Male

DRUGS (9)
  1. AMLODIPINE BESYLATE [Suspect]
     Dosage: 280 MG; X1;
  2. METFORMIN HYDROCHLORIDE [Suspect]
  3. DOXAZOSIN MESYLATE [Concomitant]
  4. ANGETTES [Concomitant]
  5. CALCIUM [Concomitant]
  6. POTASSIUM CHLORIDE [Concomitant]
  7. GLUCOSE [Concomitant]
  8. EPINEPHRINE [Concomitant]
  9. NOREPINEPHRINE [Concomitant]

REACTIONS (2)
  - HYPOTENSION [None]
  - OVERDOSE [None]
